FAERS Safety Report 9728739 (Version 1)
Quarter: 2013Q4

REPORT INFORMATION
  Report Type: Spontaneous
  Country: CO (occurrence: CO)
  Receive Date: 20131204
  Receipt Date: 20131204
  Transmission Date: 20140711
  Serious: Yes (Other)
  Sender: FDA-Public Use
  Company Number: CO-PFIZER INC-2013342803

PATIENT
  Age: 67 Year
  Sex: Female

DRUGS (3)
  1. PREMARIN [Suspect]
     Dosage: 0.65 MG, 1X/DAY
     Route: 048
     Dates: start: 1994, end: 2008
  2. PREMARIN [Suspect]
     Dosage: 0.3 MG, 1X/DAY
     Route: 048
     Dates: start: 2008
  3. LOVASTATIN [Concomitant]
     Indication: HYPERCHOLESTEROLAEMIA
     Dosage: 10 MG, AS NEEDED
     Route: 048

REACTIONS (2)
  - Hypertension [Not Recovered/Not Resolved]
  - Osteoporosis [Not Recovered/Not Resolved]
